FAERS Safety Report 9711955 (Version 1)
Quarter: 2013Q4

REPORT INFORMATION
  Report Type: Spontaneous
  Country: US (occurrence: US)
  Receive Date: 20131126
  Receipt Date: 20131126
  Transmission Date: 20140711
  Serious: No
  Sender: FDA-Public Use
  Company Number: US-PFIZER INC-2013334775

PATIENT
  Sex: Male

DRUGS (1)
  1. LYRICA [Suspect]
     Indication: SPINAL DISORDER
     Dosage: UNK
     Dates: start: 2010, end: 20131101

REACTIONS (15)
  - Off label use [Unknown]
  - Vision blurred [Unknown]
  - Fatigue [Unknown]
  - Dry mouth [Unknown]
  - Depression [Unknown]
  - Anxiety [Unknown]
  - Drug intolerance [Unknown]
  - Confusional state [Unknown]
  - Agitation [Unknown]
  - Speech disorder [Unknown]
  - Feeling abnormal [Unknown]
  - Euphoric mood [Unknown]
  - Dizziness [Unknown]
  - Memory impairment [Unknown]
  - Drug ineffective for unapproved indication [Unknown]
